FAERS Safety Report 9250323 (Version 1)
Quarter: 2013Q2

REPORT INFORMATION
  Report Type: Spontaneous
  Country: US (occurrence: None)
  Receive Date: 20130419
  Receipt Date: 20130419
  Transmission Date: 20140414
  Serious: Yes (Life-Threatening, Hospitalization, Disabling, Other)
  Sender: FDA-Public Use
  Company Number: None

PATIENT
  Age: 28 Year
  Sex: Female
  Weight: 44.91 kg

DRUGS (2)
  1. CLONAZEPAM/KLONOPIN [Suspect]
     Dosage: SEVERAL YEARS LOW DOSAGE TO MID DOSE
     Dates: start: 20070101, end: 20110701
  2. KLONOPIN/CLONAZPAM [Concomitant]

REACTIONS (2)
  - Withdrawal syndrome [None]
  - Suicide attempt [None]
